FAERS Safety Report 8559510-8 (Version None)
Quarter: 2012Q2

REPORT INFORMATION
  Report Type: 
  Country: None (occurrence: None)
  Receive Date: 20120418
  Receipt Date: 20110421
  Transmission Date: 20120825
  Serious: Yes (Hospitalization)
  Sender: FDA-Public Use
  Company Number: PHHY2011US34121

PATIENT
  Sex: Male

DRUGS (8)
  1. BYSTOLIC [Suspect]
     Indication: BLOOD PRESSURE ABNORMAL
  2. PLAVIX [Concomitant]
  3. OMEGA-3-ACID ETHYL ESTERS (LOVAZA) [Concomitant]
  4. NEXIUM [Concomitant]
  5. VITAMIN (VITAMIN) [Concomitant]
  6. METOPROLOL TARTRATE [Suspect]
     Indication: BLOOD PRESSURE ABNORMAL
     Dates: start: 20090101
  7. DIOVAN HCT [Suspect]
     Indication: BLOOD PRESSURE ABNORMAL
     Dates: start: 20080101
  8. ASPIRIN [Concomitant]

REACTIONS (2)
  - BLOOD PRESSURE ABNORMAL [None]
  - DRUG INEFFECTIVE [None]
